FAERS Safety Report 16443400 (Version 1)
Quarter: 2019Q2

REPORT INFORMATION
  Report Type: Spontaneous
  Country: BR (occurrence: BR)
  Receive Date: 20190618
  Receipt Date: 20190618
  Transmission Date: 20190711
  Serious: Yes (Hospitalization, Other)
  Sender: FDA-Public Use
  Company Number: BR-009507513-1906BRA004594

PATIENT
  Age: 65 Year
  Sex: Male

DRUGS (3)
  1. TEMODAL [Suspect]
     Active Substance: TEMOZOLOMIDE
     Indication: BRAIN NEOPLASM MALIGNANT
     Dosage: UNK
     Route: 048
     Dates: start: 201905
  2. TEMODAL [Suspect]
     Active Substance: TEMOZOLOMIDE
     Indication: BRAIN NEOPLASM MALIGNANT
     Dosage: UNK
     Route: 048
     Dates: start: 201905
  3. XARELTO [Concomitant]
     Active Substance: RIVAROXABAN
     Dosage: UNK
     Dates: end: 20190604

REACTIONS (2)
  - Gastric haemorrhage [Unknown]
  - Thrombosis [Unknown]

NARRATIVE: CASE EVENT DATE: 20190604
